FAERS Safety Report 4742417-1 (Version None)
Quarter: 2005Q3

REPORT INFORMATION
  Report Type: 
  Country: None (occurrence: None)
  Receive Date: 20050811
  Receipt Date: 20050615
  Transmission Date: 20060218
  Serious: Yes (Hospitalization, Other)
  Sender: FDA-Public Use
  Company Number: 200515683GDDC

PATIENT
  Age: 47 Year
  Sex: Female

DRUGS (5)
  1. ARAVA [Suspect]
     Indication: RHEUMATOID ARTHRITIS
     Route: 048
     Dates: start: 20050324
  2. HYDROXYCHLOROQUINE SULFATE [Concomitant]
     Dosage: DOSE: UNK
  3. METHOTREXATE [Concomitant]
     Dosage: DOSE: UNK
  4. CELECOXIB [Concomitant]
     Dosage: DOSE: UNK
  5. PREDNISOLONE [Concomitant]

REACTIONS (2)
  - CONVULSION [None]
  - STOMATITIS [None]
